FAERS Safety Report 11757953 (Version 1)
Quarter: 2015Q4

REPORT INFORMATION
  Report Type: Report from Study
  Country: US (occurrence: None)
  Receive Date: 20151117
  Receipt Date: 20151117
  Transmission Date: 20160304
  Serious: Yes (Hospitalization)
  Sender: FDA-Public Use
  Company Number: 2015US003274

PATIENT
  Sex: Male

DRUGS (8)
  1. PROAIR /00972202/ (FLUTICASONE PROPIONATE) [Concomitant]
  2. ANOROL (ORPHENADRINE CITRATE, PARACETAMOL) [Concomitant]
  3. GLASSIA [Suspect]
     Active Substance: .ALPHA.1-PROTEINASE INHIBITOR HUMAN
     Indication: ALPHA-1 ANTI-TRYPSIN DEFICIENCY
     Dosage: 3000 MG, WEEKLY, INTRAVENOUS
     Route: 042
     Dates: start: 20150401
  4. THEOPHYLLINE (THEOPHYLLINE) [Concomitant]
     Active Substance: THEOPHYLLINE ANHYDROUS
  5. PREDNISONE (PREDNISONE) [Concomitant]
     Active Substance: PREDNISONE
  6. ZANTAC [Concomitant]
     Active Substance: RANITIDINE HYDROCHLORIDE
  7. PROTONIX [Concomitant]
     Active Substance: PANTOPRAZOLE SODIUM
  8. PROZAC [Concomitant]
     Active Substance: FLUOXETINE HYDROCHLORIDE

REACTIONS (2)
  - Nasopharyngitis [None]
  - Chronic obstructive pulmonary disease [None]

NARRATIVE: CASE EVENT DATE: 20150401
